FAERS Safety Report 26104962 (Version 1)
Quarter: 2025Q4

REPORT INFORMATION
  Report Type: Spontaneous
  Country: US (occurrence: US)
  Receive Date: 20251130
  Receipt Date: 20251130
  Transmission Date: 20260118
  Serious: No
  Sender: ALKEM
  Company Number: None

PATIENT
  Age: 45 Year
  Sex: Female

DRUGS (7)
  1. MYCOPHENOLATE MOFETIL [Suspect]
     Active Substance: MYCOPHENOLATE MOFETIL
     Indication: Organising pneumonia
     Dosage: 500 MILLIGRAMS, BID (EVERY 12 HOUR)
     Route: 065
  2. MYCOPHENOLATE MOFETIL [Suspect]
     Active Substance: MYCOPHENOLATE MOFETIL
     Indication: COVID-19
     Dosage: 1000 MILLIGRAM, BID
     Route: 065
  3. METHYLPREDNISOLONE [Concomitant]
     Active Substance: METHYLPREDNISOLONE
     Indication: Organising pneumonia
     Dosage: 1 MILLIGRAM/KILOGRAM (HIGH-DOSE)
     Route: 065
  4. PREDNISONE [Concomitant]
     Active Substance: PREDNISONE
     Indication: Rheumatoid arthritis
     Dosage: UNK (LOW DOSE)
     Route: 065
  5. PREDNISONE [Concomitant]
     Active Substance: PREDNISONE
     Indication: Organising pneumonia
     Dosage: 40 MILLIGRAM
     Route: 048
  6. PREDNISONE [Concomitant]
     Active Substance: PREDNISONE
     Indication: COVID-19
     Dosage: UNK (TAPERED)
     Route: 065
  7. PREDNISONE [Concomitant]
     Active Substance: PREDNISONE
     Dosage: 40 MG/DAY
     Route: 042

REACTIONS (2)
  - Gastrointestinal disorder [Unknown]
  - Therapy non-responder [Unknown]
